FAERS Safety Report 5024700-8 (Version None)
Quarter: 2006Q2

REPORT INFORMATION
  Report Type: 
  Country: None (occurrence: None)
  Receive Date: 20060427
  Receipt Date: 20050607
  Transmission Date: 20061013
  Serious: Yes (Hospitalization)
  Sender: FDA-Public Use
  Company Number: US-JNJFOC-20050300798

PATIENT
  Age: 75 Year
  Sex: Male

DRUGS (5)
  1. GALANTAMINE HYDROBROMIDE [Suspect]
     Indication: AMNESIA
     Dates: start: 20030328
  2. COUMADIN [Concomitant]
  3. K-DUR 10 [Concomitant]
  4. LASIX [Concomitant]
  5. EXELON [Concomitant]

REACTIONS (2)
  - CEREBROVASCULAR ACCIDENT [None]
  - TRANSIENT ISCHAEMIC ATTACK [None]
